FAERS Safety Report 19881550 (Version 3)
Quarter: 2022Q3

REPORT INFORMATION
  Report Type: Spontaneous
  Country: US (occurrence: US)
  Receive Date: 20210925
  Receipt Date: 20220711
  Transmission Date: 20221026
  Serious: No
  Sender: FDA-Public Use
  Company Number: US-BIOGEN-2021BI01052063

PATIENT
  Age: 50 Year
  Sex: Female

DRUGS (3)
  1. TECFIDERA [Suspect]
     Active Substance: DIMETHYL FUMARATE
     Indication: Product used for unknown indication
     Route: 050
     Dates: start: 202011
  2. TECFIDERA [Suspect]
     Active Substance: DIMETHYL FUMARATE
     Route: 050
  3. TECFIDERA [Suspect]
     Active Substance: DIMETHYL FUMARATE
     Route: 050
     Dates: start: 202011

REACTIONS (7)
  - Product dose omission issue [Unknown]
  - Extra dose administered [Unknown]
  - Abdominal discomfort [Unknown]
  - Nausea [Unknown]
  - Dyspepsia [Unknown]
  - Flushing [Unknown]
  - Memory impairment [Unknown]

NARRATIVE: CASE EVENT DATE: 20210701
